FAERS Safety Report 6386395-0 (Version None)
Quarter: 2009Q3

REPORT INFORMATION
  Report Type: 
  Country: None (occurrence: None)
  Receive Date: 20090930
  Receipt Date: 20090930
  Transmission Date: 20100115
  Serious: Yes (Disabling, Other)
  Sender: FDA-Public Use
  Company Number: None

PATIENT
  Age: 17 Year
  Sex: Female
  Weight: 52.1637 kg

DRUGS (2)
  1. SINGULAIR [Suspect]
     Indication: ASTHMA
     Dosage: 10 MG. 1X DAILY PO
     Route: 048
     Dates: start: 20040701, end: 20090923
  2. SINGULAIR [Suspect]
     Indication: ASTHMA EXERCISE INDUCED
     Dosage: 10 MG. 1X DAILY PO
     Route: 048
     Dates: start: 20040701, end: 20090923

REACTIONS (4)
  - DIZZINESS [None]
  - EXERCISE TOLERANCE DECREASED [None]
  - HEADACHE [None]
  - WEIGHT DECREASED [None]
